FAERS Safety Report 7082428-7 (Version None)
Quarter: 2010Q4

REPORT INFORMATION
  Report Type: 
  Country: None (occurrence: None)
  Receive Date: 20101104
  Receipt Date: 20101026
  Transmission Date: 20110411
  Serious: No
  Sender: FDA-Public Use
  Company Number: 2008BI014402

PATIENT
  Sex: Female

DRUGS (1)
  1. TYSABRI [Suspect]
     Indication: MULTIPLE SCLEROSIS
     Route: 042
     Dates: start: 20080529

REACTIONS (19)
  - ANIMAL BITE [None]
  - BACK INJURY [None]
  - CATHETER SITE PAIN [None]
  - DEVICE FAILURE [None]
  - DRUG INEFFECTIVE [None]
  - FALL [None]
  - FATIGUE [None]
  - GENITAL INFECTION FEMALE [None]
  - HEADACHE [None]
  - IMMUNE SYSTEM DISORDER [None]
  - INFECTED BITES [None]
  - JOINT INJURY [None]
  - LOSS OF CONTROL OF LEGS [None]
  - MULTIPLE SCLEROSIS [None]
  - MULTIPLE SCLEROSIS RELAPSE [None]
  - MUSCLE SPASTICITY [None]
  - NECK INJURY [None]
  - TORTICOLLIS [None]
  - UPPER RESPIRATORY TRACT INFECTION [None]
